FAERS Safety Report 24716902 (Version 1)
Quarter: 2024Q4

REPORT INFORMATION
  Report Type: Report from Study
  Country: US (occurrence: US)
  Receive Date: 20241210
  Receipt Date: 20241210
  Transmission Date: 20250115
  Serious: Yes (Death, Hospitalization)
  Sender: MYLAN
  Company Number: US-MYLANLABS-2024M1110277

PATIENT
  Age: 62 Year
  Sex: Female

DRUGS (9)
  1. PREDNISONE [Suspect]
     Active Substance: PREDNISONE
     Indication: Immune-mediated enterocolitis
     Dosage: UNK
     Route: 048
     Dates: start: 20170330, end: 2017
  2. PREDNISONE [Suspect]
     Active Substance: PREDNISONE
     Indication: Immune-mediated hepatic disorder
     Dosage: 60 MILLIGRAM, QD
     Route: 048
     Dates: start: 20170727, end: 20170927
  3. PREDNISONE [Suspect]
     Active Substance: PREDNISONE
     Dosage: 45 MILLIGRAM, QD
     Route: 048
     Dates: start: 20170927, end: 20181018
  4. MYCOPHENOLATE MOFETIL [Suspect]
     Active Substance: MYCOPHENOLATE MOFETIL
     Indication: Immune-mediated hepatic disorder
     Dosage: 1000 MILLIGRAM, BID
     Route: 065
     Dates: start: 20170727, end: 20170927
  5. TACROLIMUS [Suspect]
     Active Substance: TACROLIMUS
     Indication: Immune-mediated hepatic disorder
     Dosage: 1 MILLIGRAM, BID
     Route: 065
     Dates: start: 20170927, end: 20171231
  6. GEMCITABINE [Suspect]
     Active Substance: GEMCITABINE
     Indication: Lung carcinoma cell type unspecified stage IV
     Dosage: UNK
     Route: 065
     Dates: start: 2021
  7. URSODIOL [Concomitant]
     Active Substance: URSODIOL
     Indication: Cholangitis sclerosing
     Dosage: UNK
     Route: 065
     Dates: start: 20171027
  8. TOCILIZUMAB [Concomitant]
     Active Substance: TOCILIZUMAB
     Indication: Immune-mediated hepatic disorder
     Dosage: UNK
     Route: 042
     Dates: start: 20180417
  9. HYDROXYCHLOROQUINE [Concomitant]
     Active Substance: HYDROXYCHLOROQUINE
     Indication: Arthritis
     Dosage: UNK
     Route: 065
     Dates: start: 20190201

REACTIONS (2)
  - Glycogen storage disorder [Unknown]
  - Drug ineffective [Fatal]

NARRATIVE: CASE EVENT DATE: 20170101
